FAERS Safety Report 5477645-3 (Version None)
Quarter: 2007Q4

REPORT INFORMATION
  Report Type: 
  Country: None (occurrence: None)
  Receive Date: 20071002
  Receipt Date: 20070802
  Transmission Date: 20080405
  Serious: Yes (Disabling, Other)
  Sender: FDA-Public Use
  Company Number: 2007RR-09639

PATIENT
  Sex: Female
  Weight: 98 kg

DRUGS (1)
  1. FENOFIBRATE 200MG CAPSULES (FENOFIBRATE) UNKNOWN [Suspect]
     Dosage: 160 MG, ORAL
     Route: 048
     Dates: start: 19970101, end: 20040101

REACTIONS (3)
  - BLISTER [None]
  - RASH [None]
  - SCAR [None]
